FAERS Safety Report 25929899 (Version 1)
Quarter: 2025Q4

REPORT INFORMATION
  Report Type: Spontaneous
  Country: EU (occurrence: EU)
  Receive Date: 20251016
  Receipt Date: 20251016
  Transmission Date: 20260118
  Serious: Yes (Other)
  Sender: DR REDDYS
  Company Number: None

PATIENT
  Age: 56 Year
  Sex: Female

DRUGS (4)
  1. FULVESTRANT [Suspect]
     Active Substance: FULVESTRANT
     Indication: HER2 negative breast cancer
     Route: 065
  2. PACLITAXEL [Suspect]
     Active Substance: PACLITAXEL
     Indication: HER2 negative breast cancer
     Dosage: WEEKLY
     Route: 065
  3. CAPECITABINE [Suspect]
     Active Substance: CAPECITABINE
     Indication: Chemotherapy
     Dosage: 1 CYCLE
     Route: 065
     Dates: start: 201510
  4. CAPECITABINE [Suspect]
     Active Substance: CAPECITABINE
     Indication: HER2 negative breast cancer
     Dosage: WITH ANTIEMETIC PREVENTION, 85 CYCLES
     Route: 065
     Dates: end: 202202

REACTIONS (4)
  - Disease progression [Unknown]
  - Polyneuropathy [Unknown]
  - Vomiting [Unknown]
  - Drug ineffective [Unknown]
